FAERS Safety Report 8365693-5 (Version None)
Quarter: 2012Q2

REPORT INFORMATION
  Report Type: 
  Country: None (occurrence: None)
  Receive Date: 20120516
  Receipt Date: 20120510
  Transmission Date: 20120825
  Serious: Yes (Other)
  Sender: FDA-Public Use
  Company Number: US-AMGEN-USASP2011069767

PATIENT
  Age: 57 Year
  Sex: Female

DRUGS (1)
  1. ENBREL [Suspect]
     Indication: PSORIATIC ARTHROPATHY
     Dosage: 50 MG, QWK
     Dates: start: 20111219

REACTIONS (6)
  - HEADACHE [None]
  - SINUSITIS [None]
  - PERIORBITAL OEDEMA [None]
  - INJECTION SITE PAIN [None]
  - BRONCHITIS [None]
  - DRUG INEFFECTIVE [None]
